FAERS Safety Report 8840026 (Version 2)
Quarter: 2014Q2

REPORT INFORMATION
  Report Type: Spontaneous
  Country: US (occurrence: US)
  Receive Date: 20121015
  Receipt Date: 20131024
  Transmission Date: 20141212
  Serious: No
  Sender: FDA-Public Use
  Company Number: US-PFIZER INC-2012250399

PATIENT
  Age: 57 Year
  Sex: Female
  Weight: 61.22 kg

DRUGS (6)
  1. MORPHINE SULFATE [Suspect]
     Indication: PAIN
     Dosage: UNK
  2. MORPHINE SULFATE [Suspect]
     Indication: MUSCLE SPASMS
  3. DEMEROL [Suspect]
     Indication: PAIN
     Dosage: UNK
  4. DEMEROL [Suspect]
     Indication: MUSCLE SPASMS
  5. FLEXERIL [Concomitant]
     Indication: PAIN
  6. FLEXERIL [Concomitant]
     Indication: MUSCLE SPASMS

REACTIONS (1)
  - Drug effect incomplete [Unknown]
